FAERS Safety Report 15811155 (Version 1)
Quarter: 2019Q1

REPORT INFORMATION
  Report Type: Spontaneous
  Country: US (occurrence: US)
  Receive Date: 20190111
  Receipt Date: 20190111
  Transmission Date: 20190417
  Serious: No
  Sender: FDA-Public Use
  Company Number: US-ASTRAZENECA-2019SE00871

PATIENT
  Age: 747 Month
  Sex: Male
  Weight: 97.5 kg

DRUGS (2)
  1. LIALDA [Concomitant]
     Active Substance: MESALAMINE
     Indication: COLITIS
     Dosage: 2 PILLS A DAY AS OF 10 TO 15 YEARS AGO
     Route: 048
  2. TUDORZA PRESSAIR [Suspect]
     Active Substance: ACLIDINIUM BROMIDE
     Indication: CHRONIC OBSTRUCTIVE PULMONARY DISEASE
     Route: 055
     Dates: start: 201809

REACTIONS (11)
  - Dyspnoea [Unknown]
  - Intentional product misuse [Unknown]
  - Device defective [Unknown]
  - Influenza [Unknown]
  - Respiratory rate increased [Unknown]
  - Pulmonary function test decreased [Unknown]
  - Off label use [Unknown]
  - Incorrect dose administered by device [Unknown]
  - Malaise [Unknown]
  - Feeling abnormal [Unknown]
  - Product storage error [Unknown]

NARRATIVE: CASE EVENT DATE: 201809
